FAERS Safety Report 7399012-8 (Version None)
Quarter: 2011Q2

REPORT INFORMATION
  Report Type: 
  Country: None (occurrence: None)
  Receive Date: 20110407
  Receipt Date: 20110401
  Transmission Date: 20111010
  Serious: Yes (Other)
  Sender: FDA-Public Use
  Company Number: FR-ROXANE LABORATORIES, INC.-2011-DE-02156GD

PATIENT
  Age: 48 Year

DRUGS (5)
  1. MORPHINE [Suspect]
     Dosage: 60 MG
     Route: 037
  2. ORAMORPH SR [Suspect]
     Indication: PAIN
     Dosage: 1700 MG
     Route: 048
  3. CLONIDINE [Suspect]
     Indication: PAIN
     Dosage: 75 MCG
     Route: 037
  4. MORPHINE [Suspect]
     Indication: PAIN
     Dosage: 42 MG
     Route: 037
  5. CLONIDINE [Suspect]
     Dosage: 100 MCG
     Route: 037

REACTIONS (8)
  - STAPHYLOCOCCAL INFECTION [None]
  - SEDATION [None]
  - BRADYPNOEA [None]
  - DRUG TOLERANCE [None]
  - DRUG EFFECT DECREASED [None]
  - DEVICE RELATED INFECTION [None]
  - HYPERAESTHESIA [None]
  - COGNITIVE DISORDER [None]
